FAERS Safety Report 16452066 (Version 1)
Quarter: 2019Q2

REPORT INFORMATION
  Report Type: Spontaneous
  Country: US (occurrence: US)
  Receive Date: 20190619
  Receipt Date: 20190619
  Transmission Date: 20190711
  Serious: No
  Sender: FDA-Public Use
  Company Number: US-ROCHE-2203364

PATIENT
  Sex: Male
  Weight: 85.81 kg

DRUGS (1)
  1. ACTEMRA [Suspect]
     Active Substance: TOCILIZUMAB
     Indication: RHEUMATOID ARTHRITIS
     Dosage: EVERY 4 WEEKS; ONGOING: UNKNOWN
     Route: 042
     Dates: start: 20180713

REACTIONS (2)
  - Vertigo [Recovering/Resolving]
  - Fall [Unknown]
